FAERS Safety Report 5318783-5 (Version None)
Quarter: 2007Q2

REPORT INFORMATION
  Report Type: 
  Country: None (occurrence: None)
  Receive Date: 20070504
  Receipt Date: 20070504
  Transmission Date: 20071010
  Serious: Yes (Hospitalization)
  Sender: FDA-Public Use
  Company Number: None

PATIENT
  Age: 57 Year
  Sex: Male
  Weight: 91.1 kg

DRUGS (15)
  1. VENLAFAXINE HCL [Suspect]
     Indication: DEPRESSION
     Dosage: 150 MG BID
     Dates: start: 20010307, end: 20070103
  2. VENLAFAXINE HCL [Suspect]
     Indication: POST-TRAUMATIC STRESS DISORDER
     Dosage: 150 MG BID
     Dates: start: 20010307, end: 20070103
  3. METFORMIN HCL [Concomitant]
  4. GLUCAGON (EMERGENCY KIT) [Concomitant]
  5. LISINOPRIL [Concomitant]
  6. INSULIN NPH HUMAN 100 UNIT/ML NOVOLIN N [Concomitant]
  7. DILANTIN [Concomitant]
  8. SIMVASTATIN [Concomitant]
  9. RISPERIDONE [Concomitant]
  10. ASPIRIN [Concomitant]
  11. INSULIN REG HUMAN 100 UNIT/ML NOVOLIN R [Concomitant]
  12. BUSPIRONE HCL [Concomitant]
  13. MIRTAZAPINE [Concomitant]
  14. MULTIVITAMIN/MINERALS THERAPEUT [Concomitant]
  15. RANITIDINE HCL [Concomitant]

REACTIONS (1)
  - CONVULSION [None]
